FAERS Safety Report 8393499-X (Version None)
Quarter: 2012Q2

REPORT INFORMATION
  Report Type: 
  Country: None (occurrence: None)
  Receive Date: 20120529
  Receipt Date: 20120523
  Transmission Date: 20120825
  Serious: Yes (Hospitalization)
  Sender: FDA-Public Use
  Company Number: DE-ACTELION-A-US2012-64512

PATIENT

DRUGS (3)
  1. VENTAVIS [Suspect]
     Indication: PULMONARY ARTERIAL HYPERTENSION
     Dosage: 2.5 UG, Q4HR
     Route: 055
     Dates: start: 20120328
  2. VOLIBRIS [Concomitant]
  3. REVATIO [Concomitant]

REACTIONS (5)
  - OEDEMA PERIPHERAL [None]
  - CONDITION AGGRAVATED [None]
  - PULMONARY ARTERIAL HYPERTENSION [None]
  - RESPIRATORY DISORDER [None]
  - DYSPNOEA [None]
